FAERS Safety Report 9546175 (Version 1)
Quarter: 2013Q3

REPORT INFORMATION
  Report Type: Spontaneous
  Country: US (occurrence: US)
  Receive Date: 20130923
  Receipt Date: 20130923
  Transmission Date: 20140515
  Serious: No
  Sender: FDA-Public Use
  Company Number: US-GLAXOSMITHKLINE-A1021264A

PATIENT
  Age: 88 Year
  Sex: Female

DRUGS (2)
  1. ABREVA [Suspect]
     Indication: ORAL HERPES
     Dates: start: 20130401, end: 20130413
  2. CHAPSTICK [Concomitant]

REACTIONS (2)
  - Drug administration error [Unknown]
  - Product quality issue [Unknown]
